FAERS Safety Report 6571627-6 (Version None)
Quarter: 2010Q1

REPORT INFORMATION
  Report Type: 
  Country: None (occurrence: None)
  Receive Date: 20100205
  Receipt Date: 20100128
  Transmission Date: 20100710
  Serious: Yes (Other)
  Sender: FDA-Public Use
  Company Number: US-ASTRAZENECA-2010SE04179

PATIENT
  Age: 38 Year
  Sex: Male

DRUGS (2)
  1. QUETIAPINE FUMARATE [Suspect]
     Indication: CARDIOMYOPATHY
     Route: 048
  2. SOTALOL [Suspect]
     Indication: CARDIOMYOPATHY
     Route: 065

REACTIONS (2)
  - DYSPNOEA [None]
  - PALPITATIONS [None]
